FAERS Safety Report 13668728 (Version 1)
Quarter: 2017Q2

REPORT INFORMATION
  Report Type: Spontaneous
  Country: US (occurrence: US)
  Receive Date: 20170620
  Receipt Date: 20170620
  Transmission Date: 20170830
  Serious: No
  Sender: FDA-Public Use
  Company Number: US-ASTRAZENECA-2017SE63698

PATIENT
  Age: 20243 Day
  Sex: Female
  Weight: 131.5 kg

DRUGS (1)
  1. MOVANTIK [Suspect]
     Active Substance: NALOXEGOL OXALATE
     Indication: CONSTIPATION
     Route: 048
     Dates: start: 201702, end: 20170609

REACTIONS (8)
  - Eructation [Unknown]
  - Vomiting [Unknown]
  - Pallor [Unknown]
  - Flatulence [Unknown]
  - Hyperhidrosis [Unknown]
  - Retching [Unknown]
  - Diarrhoea [Unknown]
  - Tremor [Unknown]

NARRATIVE: CASE EVENT DATE: 20170609
